FAERS Safety Report 23402779 (Version 2)
Quarter: 2024Q1

REPORT INFORMATION
  Report Type: Report from Study
  Country: HU (occurrence: HU)
  Receive Date: 20240115
  Receipt Date: 20240122
  Transmission Date: 20240410
  Serious: Yes (Other)
  Sender: FDA-Public Use
  Company Number: HU-ABBVIE-5585043

PATIENT
  Sex: Male

DRUGS (11)
  1. CARBIDOPA\LEVODOPA [Suspect]
     Active Substance: CARBIDOPA\LEVODOPA
     Indication: Parkinson^s disease
     Dosage: MORNING DOSE: 7.5 ML; CONTINUOUS DOSE: 4.5 ML/HOUR; EXTRA DOSE: 2.3 ML
     Route: 050
     Dates: start: 20220608
  2. CARBIDOPA\LEVODOPA [Suspect]
     Active Substance: CARBIDOPA\LEVODOPA
  3. STALEVO [Concomitant]
     Active Substance: CARBIDOPA\ENTACAPONE\LEVODOPA
     Indication: Parkinson^s disease
     Dosage: FORM STRENGTH: 175 MILLIGRAM?FREQUENCY TEXT: 1 TABLET AT 22:00
  4. PERINDOPRIL ERBUMINE [Concomitant]
     Active Substance: PERINDOPRIL ERBUMINE
     Indication: Hypertension
     Dosage: 2 MILLIGRAM?? FORM STRENGTH: 4 MILLIGRAM?FREQUENCY TEXT: HALF TABLET DAILY
  5. CLOPIDOGREL [Concomitant]
     Active Substance: CLOPIDOGREL BISULFATE
     Indication: Prophylaxis
     Dosage: FORM STRENGTH: 75 MILLIGRAM?FREQUENCY TEXT: 1 TABLET IN THE MORNING
  6. MAGNESIUM ASPARTATE\POTASSIUM ASPARTATE [Concomitant]
     Active Substance: MAGNESIUM ASPARTATE\POTASSIUM ASPARTATE
     Indication: Prophylaxis
     Dosage: 158 MG POTASSIUM ASPARTATE, 140 MG MAGNESIUM ASPARTATE? FREQUENCY TEXT: 1 TABLET IN THE MORNING
  7. NEUPRO [Concomitant]
     Active Substance: ROTIGOTINE
     Indication: Parkinson^s disease
     Dosage: 6 MILLIGRAM? FORM STRENGTH: 6 MILLIGRAM
     Dates: start: 20230318, end: 20240110
  8. MIRVEDOL [Concomitant]
     Indication: Dementia
     Dosage: FORM STRENGTH: 20 MILLIGRAM?FREQUENCY TEXT: 1 TABLET IN THE EVENING
  9. ALFUZOSIN [Concomitant]
     Active Substance: ALFUZOSIN
     Indication: Prostatic disorder
     Dosage: FORM STRENGTH: 10 MILLIGRAM
  10. ESOMEPRAZOLE [Concomitant]
     Active Substance: ESOMEPRAZOLE
     Indication: Prophylaxis
     Dosage: FORM STRENGTH: 40 MILLIGRAM?FREQUENCY TEXT: 1 TABLET AT NOON
  11. ROSUVASTATIN CALCIUM [Concomitant]
     Active Substance: ROSUVASTATIN CALCIUM
     Indication: Blood cholesterol increased
     Dosage: 20 MILLIGRAM?FORM STRENGTH: 20 MILLIGRAM?FREQUENCY TEXT: 1 TABLET IN THE EVENING

REACTIONS (6)
  - Epilepsy [Recovered/Resolved]
  - Epilepsy [Recovering/Resolving]
  - Movement disorder [Not Recovered/Not Resolved]
  - Loss of personal independence in daily activities [Not Recovered/Not Resolved]
  - General physical health deterioration [Not Recovered/Not Resolved]
  - Gait inability [Not Recovered/Not Resolved]

NARRATIVE: CASE EVENT DATE: 20240105
